FAERS Safety Report 24031205 (Version 4)
Quarter: 2024Q3

REPORT INFORMATION
  Report Type: Spontaneous
  Country: JP (occurrence: JP)
  Receive Date: 20240629
  Receipt Date: 20240807
  Transmission Date: 20241017
  Serious: Yes (Disabling, Other)
  Sender: ABBVIE
  Company Number: JP-ABBVIE-5819221

PATIENT
  Age: 78 Year
  Sex: Male

DRUGS (15)
  1. ALPHAGAN P [Suspect]
     Active Substance: BRIMONIDINE TARTRATE
     Indication: Glaucoma
     Dosage: OPHTHALMIC SOLUTION FIRST ADMIN DATE: 05 MAR 2019
     Route: 047
     Dates: end: 20220422
  2. ALPHAGAN P [Suspect]
     Active Substance: BRIMONIDINE TARTRATE
     Dosage: OPHTHALMIC SOLUTION
     Route: 047
     Dates: start: 20220422, end: 20231012
  3. ALPHAGAN P [Suspect]
     Active Substance: BRIMONIDINE TARTRATE
     Dosage: OPHTHALMIC SOLUTION
     Route: 047
     Dates: start: 20240321, end: 20240620
  4. ALPHAGAN P [Suspect]
     Active Substance: BRIMONIDINE TARTRATE
     Dosage: OPHTHALMIC SOLUTION
     Route: 047
  5. BRIMONIDINE TARTRATE\TIMOLOL MALEATE [Suspect]
     Active Substance: BRIMONIDINE TARTRATE\TIMOLOL MALEATE
     Indication: Glaucoma
     Dosage: COMBINATION OPHTHALMIC SOLUTION?1 GTT RIGHT EYE
     Route: 047
     Dates: start: 20220422, end: 20231012
  6. BRIMONIDINE TARTRATE\TIMOLOL MALEATE [Suspect]
     Active Substance: BRIMONIDINE TARTRATE\TIMOLOL MALEATE
     Indication: Glaucoma
     Dosage: COMBINATION OPHTHALMIC SOLUTION
     Route: 047
  7. REBAMIPIDE [Suspect]
     Active Substance: REBAMIPIDE
     Indication: Keratitis
     Dosage: OPHTHALMIC SUSPENSION UD 2% 0.35 ML?FIRST ADMIN DATE- 21 NOV 2020?LAST ADMIN DATE- 07 SEP 2023
     Route: 047
  8. HYALURONATE SODIUM [Suspect]
     Active Substance: HYALURONATE SODIUM
     Indication: Product used for unknown indication
     Dosage: IN RIGHT EYE. FIRST ADMIN DATE 2024
     Route: 047
  9. HYALURONATE SODIUM [Suspect]
     Active Substance: HYALURONATE SODIUM
     Indication: Product used for unknown indication
     Dosage: BOTH EYES?OPHTHALMIC SOLUTION 0.1% IN?START DATE 08 AUG 2019
     Route: 047
  10. HYALURONATE SODIUM [Suspect]
     Active Substance: HYALURONATE SODIUM
     Indication: Product used for unknown indication
     Dosage: IN RIGHT EYE
     Route: 047
     Dates: start: 202204
  11. HYALURONATE SODIUM [Suspect]
     Active Substance: HYALURONATE SODIUM
     Indication: Product used for unknown indication
     Dosage: IN RIGHT EYE
     Route: 047
     Dates: start: 20240321, end: 20240620
  12. BROMFENAC SODIUM [Suspect]
     Active Substance: BROMFENAC SODIUM
     Indication: Product used for unknown indication
     Dosage: OPHTHALMIC SOLUTION 0.1%?BOTH EYES ?FIRST ADMIN DATE: 05 MAR 2019, LAST ADMIN DATE: 2019
     Route: 047
  13. CYANOCOBALAMIN [Suspect]
     Active Substance: CYANOCOBALAMIN
     Indication: Product used for unknown indication
     Dosage: OPHTHALMIC SOLUTION 0.02% ?BOTH EYES?FIRST ADMIN DATE: 08 AUG 2019?LAST ADMIN DATE 2019.
     Route: 047
  14. CYANOCOBALAMIN [Suspect]
     Active Substance: CYANOCOBALAMIN
     Indication: Product used for unknown indication
     Dosage: OPHTHALMIC SOLUTION 0.02% ?BOTH EYES
     Route: 047
     Dates: start: 20200422, end: 20231012
  15. CYANOCOBALAMIN [Suspect]
     Active Substance: CYANOCOBALAMIN
     Indication: Product used for unknown indication
     Dosage: OPHTHALMIC SOLUTION 0.02% ?BOTH EYES?FIRST ADMIN DATE: 05 MAR 2019 AND LAST ADMIN DATE 2019.
     Route: 047

REACTIONS (5)
  - Corneal infiltrates [Unknown]
  - Chalazion [Recovered/Resolved]
  - Corneal erosion [Unknown]
  - Keratitis [Unknown]
  - Conjunctival hyperaemia [Unknown]

NARRATIVE: CASE EVENT DATE: 20190416
